FAERS Safety Report 12283969 (Version 1)
Quarter: 2016Q2

REPORT INFORMATION
  Report Type: Spontaneous
  Country: BR (occurrence: BR)
  Receive Date: 20160419
  Receipt Date: 20160419
  Transmission Date: 20160815
  Serious: Yes (Life-Threatening, Hospitalization, Other)
  Sender: FDA-Public Use
  Company Number: BR-ASTRAZENECA-2016SE39050

PATIENT
  Age: 82 Year
  Sex: Male

DRUGS (8)
  1. ASA [Concomitant]
     Active Substance: ASPIRIN
  2. BRILINTA [Suspect]
     Active Substance: TICAGRELOR
     Indication: STENT PLACEMENT
     Route: 048
     Dates: start: 2016
  3. AMIODARONE [Suspect]
     Active Substance: AMIODARONE
     Indication: MALAISE
     Route: 042
     Dates: start: 20160405
  4. LIPITOR [Concomitant]
     Active Substance: ATORVASTATIN CALCIUM
  5. AMIODARONE [Suspect]
     Active Substance: AMIODARONE
     Indication: VOMITING
     Route: 042
     Dates: start: 20160405
  6. LASIX [Concomitant]
     Active Substance: FUROSEMIDE
  7. AMINE [Concomitant]
  8. ARIXTRA [Concomitant]
     Active Substance: FONDAPARINUX SODIUM

REACTIONS (13)
  - Cerebral haematoma [Unknown]
  - Cough [Unknown]
  - Drug ineffective [Recovered/Resolved]
  - Brain herniation [Not Recovered/Not Resolved]
  - Vomiting [Unknown]
  - Ventricular tachycardia [Unknown]
  - Hypotension [Unknown]
  - Vascular stent thrombosis [Recovered/Resolved]
  - Malaise [Unknown]
  - Pyrexia [Unknown]
  - Haemorrhage [Unknown]
  - Bradycardia [Unknown]
  - Electrocardiogram ST segment elevation [Unknown]

NARRATIVE: CASE EVENT DATE: 2016
